FAERS Safety Report 10736775 (Version 1)
Quarter: 2015Q1

REPORT INFORMATION
  Report Type: Spontaneous
  Country: US (occurrence: None)
  Receive Date: 20150123
  Receipt Date: 20150123
  Transmission Date: 20150721
  Serious: No
  Sender: FDA-Public Use
  Company Number: None

PATIENT
  Age: 49 Year
  Sex: Male
  Weight: 78.5 kg

DRUGS (2)
  1. SOFOSBUVIR [Suspect]
     Active Substance: SOFOSBUVIR
     Indication: HEPATITIS C
     Route: 048
     Dates: start: 20140822, end: 20150109
  2. RIBAVIRIN. [Suspect]
     Active Substance: RIBAVIRIN
     Indication: HEPATITIS C
     Route: 048
     Dates: start: 20140822, end: 20150109

REACTIONS (8)
  - Vomiting [None]
  - Nausea [None]
  - Insomnia [None]
  - Therapy cessation [None]
  - Agitation [None]
  - Irritability [None]
  - Condition aggravated [None]
  - Incorrect drug administration duration [None]

NARRATIVE: CASE EVENT DATE: 20150108
